FAERS Safety Report 10470155 (Version 1)
Quarter: 2014Q3

REPORT INFORMATION
  Report Type: Spontaneous
  Country: US (occurrence: None)
  Receive Date: 20140922
  Receipt Date: 20140922
  Transmission Date: 20150326
  Serious: Yes (Other)
  Sender: FDA-Public Use
  Company Number: None

PATIENT
  Age: 60 Year
  Sex: Female
  Weight: 70.31 kg

DRUGS (1)
  1. COLGATE TOOTHPASTE [Suspect]
     Active Substance: SODIUM MONOFLUOROPHOSPHATE
     Indication: DENTAL CARE

REACTIONS (3)
  - Tooth loss [None]
  - Product formulation issue [None]
  - Gingival inflammation [None]
